FAERS Safety Report 5098378-1 (Version None)
Quarter: 2006Q3

REPORT INFORMATION
  Report Type: 
  Country: None (occurrence: None)
  Receive Date: 20060907
  Receipt Date: 20060829
  Transmission Date: 20061208
  Serious: Yes (Hospitalization, Other)
  Sender: FDA-Public Use
  Company Number: US-BAYER-200615303BWH

PATIENT

DRUGS (1)
  1. AVELOX [Suspect]
     Indication: DIVERTICULITIS
     Route: 048

REACTIONS (1)
  - CARDIAC FAILURE CONGESTIVE [None]
